FAERS Safety Report 5283942-7 (Version None)
Quarter: 2007Q1

REPORT INFORMATION
  Report Type: 
  Country: None (occurrence: None)
  Receive Date: 20070327
  Receipt Date: 20070319
  Transmission Date: 20070707
  Serious: Yes (Other)
  Sender: FDA-Public Use
  Company Number: OSCN-PR-0702S-0083

PATIENT
  Age: 68 Year
  Sex: Female

DRUGS (1)
  1. OMNISCAN [Suspect]
     Indication: RENAL ARTERY STENOSIS
     Dosage: 20 ML, SINGLE DOSE, I.V.
     Route: 042
     Dates: start: 20040302, end: 20040302

REACTIONS (1)
  - NEPHROGENIC FIBROSING DERMOPATHY [None]
